FAERS Safety Report 9820230 (Version 1)
Quarter: 2013Q4

REPORT INFORMATION
  Report Type: Spontaneous
  Country: CA (occurrence: None)
  Receive Date: 20131024
  Receipt Date: 20131024
  Transmission Date: 20140711
  Serious: Yes (Other)
  Sender: FDA-Public Use
  Company Number: 2013-01408

PATIENT
  Age: 53 Year
  Sex: Female

DRUGS (2)
  1. QUETIAPINE [Suspect]
     Indication: SCHIZOPHRENIA
     Dosage: 400 MG (200 MG, 2 IN 1 D)
  2. CLOZAPINE [Suspect]
     Indication: SCHIZOPHRENIA

REACTIONS (1)
  - Granulocytopenia [None]
